FAERS Safety Report 25109513 (Version 1)
Quarter: 2025Q1

REPORT INFORMATION
  Report Type: Spontaneous
  Country: US (occurrence: US)
  Receive Date: 20250323
  Receipt Date: 20250323
  Transmission Date: 20250409
  Serious: No
  Sender: CIPLA
  Company Number: US-CIPLA LTD.-2025US01288

PATIENT

DRUGS (10)
  1. SERTRALINE [Suspect]
     Active Substance: SERTRALINE HYDROCHLORIDE
     Indication: Sleep disorder
     Dosage: 100 MILLIGRAM, QD
     Route: 065
     Dates: start: 20220912, end: 202209
  2. SERTRALINE [Suspect]
     Active Substance: SERTRALINE HYDROCHLORIDE
     Indication: Fatigue
     Dosage: 50 MILLIGRAM, QD
     Route: 065
     Dates: start: 202209, end: 20220919
  3. SERTRALINE [Suspect]
     Active Substance: SERTRALINE HYDROCHLORIDE
     Indication: Sleep apnoea syndrome
  4. SERTRALINE [Suspect]
     Active Substance: SERTRALINE HYDROCHLORIDE
     Indication: Depression
  5. VITAMIN D NOS [Concomitant]
     Active Substance: CHOLECALCIFEROL\ERGOCALCIFEROL
     Indication: Hypovitaminosis
     Dosage: 1000 IU INTERNATIONAL UNIT(S), QD
     Route: 065
     Dates: start: 20220912, end: 202302
  6. VITAMIN D NOS [Concomitant]
     Active Substance: CHOLECALCIFEROL\ERGOCALCIFEROL
     Dosage: 2000 IU INTERNATIONAL UNIT(S), QD
     Route: 065
     Dates: start: 2023
  7. MAGNESIUM [Concomitant]
     Active Substance: MAGNESIUM
     Indication: Magnesium deficiency
     Dosage: UNK, QD
     Route: 065
     Dates: start: 20220912, end: 202302
  8. MAGNESIUM [Concomitant]
     Active Substance: MAGNESIUM
     Dosage: UNK, QD
     Route: 065
     Dates: start: 2023
  9. ZINC [Concomitant]
     Active Substance: ZINC
     Indication: Zinc deficiency
     Dosage: UNK, QD
     Route: 065
     Dates: start: 20220912, end: 202302
  10. ZINC [Concomitant]
     Active Substance: ZINC
     Dosage: UNK, QD
     Route: 065
     Dates: start: 2023

REACTIONS (12)
  - Amnesia [Recovering/Resolving]
  - Social problem [Recovering/Resolving]
  - Vitamin D decreased [Recovering/Resolving]
  - Adverse event [Not Recovered/Not Resolved]
  - Off label use [Unknown]
  - Drug ineffective for unapproved indication [Unknown]
  - Wrong technique in product usage process [Unknown]
  - Stress [Not Recovered/Not Resolved]
  - Emotional disorder [Recovering/Resolving]
  - Confusional state [Recovering/Resolving]
  - Anxiety [Not Recovered/Not Resolved]
  - Fatigue [Recovering/Resolving]

NARRATIVE: CASE EVENT DATE: 20220901
